FAERS Safety Report 9708584 (Version 2)
Quarter: 2014Q1

REPORT INFORMATION
  Report Type: Report from Study
  Country: BR (occurrence: BR)
  Receive Date: 20131125
  Receipt Date: 20140305
  Transmission Date: 20141002
  Serious: Yes (Other)
  Sender: FDA-Public Use
  Company Number: PHHY2013BR131666

PATIENT
  Age: 53 Year
  Sex: Male
  Weight: 98 kg

DRUGS (13)
  1. SANDOSTATIN LAR [Suspect]
     Indication: ACROMEGALY
     Dosage: 20 MG, I AMPOULE EACH 28 DAYS
     Dates: start: 201201
  2. SANDOSTATIN LAR [Suspect]
     Dosage: 30 MG, EVERY 28 DAYS (1 APPLICATION)
     Route: 030
     Dates: start: 201202
  3. SANDOSTATIN LAR [Suspect]
     Dosage: 40 MG, EVERY 28 DAYS, (1 APPLICATION)
     Route: 030
  4. SANDOSTATIN LAR [Suspect]
     Dosage: 30 MG, EVERY 28 DAYS, (1 APPLICATION)
     Route: 030
  5. SANDOSTATIN LAR [Suspect]
     Dosage: 20 MG, EVERY 28 DAYS, (1 APPLICATION)
     Route: 030
  6. SANDOSTATIN LAR [Suspect]
     Dosage: 20 MG, EVERY 28 DAYS, (1 APPLICATION)
     Route: 030
     Dates: start: 20131107
  7. TAXOTERE [Suspect]
     Indication: CHEMOTHERAPY
     Dosage: UNK UKN, UNK
     Route: 042
  8. TAXOL [Suspect]
     Indication: CHEMOTHERAPY
     Dosage: UNK UKN, UNK
     Route: 042
  9. PARAPLATIN [Suspect]
     Indication: CHEMOTHERAPY
     Dosage: UNK UKN, UNK
  10. DECADRON                                /CAN/ [Concomitant]
     Indication: ANTIALLERGIC THERAPY
     Dosage: UNK UKN, UNK
     Dates: start: 201204
  11. NAUSEDRON [Concomitant]
     Indication: NAUSEA
     Dosage: 3 DF, DAILY
     Route: 048
     Dates: start: 201203
  12. PANTOPRAZOLE [Concomitant]
     Indication: GASTROINTESTINAL DISORDER
     Dosage: 1 DF, DAILY
     Route: 048
     Dates: start: 201203
  13. PLATIRAN [Concomitant]
     Dosage: UNK UKN, UNK
     Route: 042
     Dates: start: 201304, end: 201306

REACTIONS (10)
  - Lung neoplasm malignant [Recovering/Resolving]
  - Nail disorder [Recovered/Resolved]
  - Onychalgia [Not Recovered/Not Resolved]
  - Nail bed inflammation [Recovered/Resolved]
  - Purulent discharge [Recovered/Resolved]
  - Decreased appetite [Recovering/Resolving]
  - Pain [Recovering/Resolving]
  - Nausea [Recovering/Resolving]
  - Dizziness [Recovering/Resolving]
  - Blood growth hormone increased [Recovered/Resolved]
